FAERS Safety Report 23621190 (Version 3)
Quarter: 2024Q3

REPORT INFORMATION
  Report Type: Report from Study
  Country: CA (occurrence: CA)
  Receive Date: 20240312
  Receipt Date: 20240909
  Transmission Date: 20241016
  Serious: Yes (Other)
  Sender: ROCHE
  Company Number: CA-002147023-NVSC2024CA048646

PATIENT
  Age: 58 Year
  Sex: Female

DRUGS (1)
  1. XOLAIR [Suspect]
     Active Substance: OMALIZUMAB
     Indication: Chronic spontaneous urticaria
     Dosage: 300 MG, EVERY 4 WEEKS
     Route: 058
     Dates: start: 20131126, end: 20180328

REACTIONS (13)
  - Anaphylactic reaction [Unknown]
  - Deafness [Unknown]
  - Anaphylactic shock [Unknown]
  - Influenza [Unknown]
  - Urticaria [Recovering/Resolving]
  - Epistaxis [Unknown]
  - Ear haemorrhage [Unknown]
  - Illness [Unknown]
  - Cough [Unknown]
  - Dizziness [Unknown]
  - Vomiting [Unknown]
  - Abdominal pain upper [Unknown]
  - Residual symptom [Unknown]

NARRATIVE: CASE EVENT DATE: 20240221
